FAERS Safety Report 9944235 (Version 1)
Quarter: 2014Q1

REPORT INFORMATION
  Report Type: Report from Study
  Country: US (occurrence: US)
  Receive Date: 20140303
  Receipt Date: 20140303
  Transmission Date: 20141002
  Serious: No
  Sender: FDA-Public Use
  Company Number: US-ABBVIE-13P-163-1054284-00

PATIENT
  Age: 53 Year
  Sex: Female
  Weight: 74.91 kg

DRUGS (8)
  1. HUMIRA [Suspect]
     Indication: RHEUMATOID ARTHRITIS
     Dates: start: 20130124
  2. ALEVE [Concomitant]
     Indication: PAIN
  3. CALCIUM [Concomitant]
     Indication: SUPPLEMENTATION THERAPY
  4. CYMBALTA [Concomitant]
     Indication: DEPRESSION
  5. FISH OIL [Concomitant]
     Indication: SUPPLEMENTATION THERAPY
  6. VITAMIN D [Concomitant]
     Indication: SUPPLEMENTATION THERAPY
  7. VIVELLE DOT [Concomitant]
     Indication: MENOPAUSE
  8. XANAX [Concomitant]
     Indication: ANXIETY

REACTIONS (2)
  - Injection site bruising [Recovered/Resolved]
  - Injection site pain [Recovered/Resolved]
